FAERS Safety Report 14475580 (Version 4)
Quarter: 2019Q1

REPORT INFORMATION
  Report Type: Spontaneous
  Country: US (occurrence: US)
  Receive Date: 20180201
  Receipt Date: 20190121
  Transmission Date: 20190417
  Serious: Yes (Death, Hospitalization, Other)
  Sender: FDA-Public Use
  Company Number: US-DSJP-DSU-2017-139872

PATIENT

DRUGS (2)
  1. BENICAR [Suspect]
     Active Substance: OLMESARTAN MEDOXOMIL
     Indication: HYPERTENSION
     Dosage: 20 MG, QD
     Route: 048
     Dates: start: 20080101, end: 20150901
  2. BENICAR [Suspect]
     Active Substance: OLMESARTAN MEDOXOMIL
     Dosage: 40 MG, QD
     Route: 048

REACTIONS (9)
  - Chronic kidney disease [Not Recovered/Not Resolved]
  - Gastrooesophageal reflux disease [Not Recovered/Not Resolved]
  - Cholecystitis chronic [Recovered/Resolved]
  - Large intestine polyp [Unknown]
  - Sprue-like enteropathy [Fatal]
  - Syncope [Unknown]
  - Acute kidney injury [Fatal]
  - Haemorrhoids [Unknown]
  - Obstructive pancreatitis [Unknown]

NARRATIVE: CASE EVENT DATE: 20070618
